FAERS Safety Report 16195426 (Version 1)
Quarter: 2019Q2

REPORT INFORMATION
  Report Type: Other
  Country: FR (occurrence: FR)
  Receive Date: 20190415
  Receipt Date: 20190415
  Transmission Date: 20190711
  Serious: Yes (Hospitalization)
  Sender: FDA-Public Use
  Company Number: FR-CELLTRION INC.-2019FR020145

PATIENT

DRUGS (5)
  1. AZANTAC INJECTABLE 50 MG/2 ML, SOLUTION INJECTABLE EN AMPOULE [Concomitant]
     Active Substance: RANITIDINE HYDROCHLORIDE
     Indication: PREMEDICATION
     Route: 042
     Dates: start: 20181204, end: 20181204
  2. HERZUMA [Suspect]
     Active Substance: TRASTUZUMAB-PKRB
     Indication: BREAST CANCER STAGE II
     Dosage: 357 MILLIGRAM (1 TOTAL)
     Route: 041
     Dates: start: 20181204, end: 20181204
  3. POLARAMINE [Concomitant]
     Active Substance: DEXCHLORPHENIRAMINE MALEATE
     Indication: PREMEDICATION
     Route: 042
     Dates: start: 20181204, end: 20181204
  4. PERJETA 420 MG, SOLUTION A DILUER POUR PERFUSION [Concomitant]
     Indication: BREAST CANCER STAGE II
     Route: 041
     Dates: start: 20181204, end: 20181204
  5. METHYLPREDNISOLONE MYLAN [Concomitant]
     Active Substance: METHYLPREDNISOLONE
     Indication: PREMEDICATION
     Route: 042
     Dates: start: 20181204, end: 20181204

REACTIONS (5)
  - Vomiting [Recovered/Resolved]
  - Infusion related reaction [Recovered/Resolved]
  - Myalgia [Recovered/Resolved]
  - Malaise [Recovered/Resolved]
  - Back pain [Recovered/Resolved]

NARRATIVE: CASE EVENT DATE: 20181204
